FAERS Safety Report 25776732 (Version 1)
Quarter: 2025Q3

REPORT INFORMATION
  Report Type: Spontaneous
  Country: US (occurrence: US)
  Receive Date: 20250909
  Receipt Date: 20250909
  Transmission Date: 20251021
  Serious: No
  Sender: DOMPE FARMACEUTICI
  Company Number: US-FARMAPROD-202503-0924

PATIENT
  Age: 63 Year
  Sex: Female

DRUGS (6)
  1. OXERVATE [Suspect]
     Active Substance: CENEGERMIN-BKBJ
     Indication: Neurotrophic keratopathy
     Route: 047
     Dates: start: 20200819
  2. OXERVATE [Suspect]
     Active Substance: CENEGERMIN-BKBJ
     Indication: Hypoaesthesia eye
     Route: 047
     Dates: start: 20250310
  3. OXERVATE [Suspect]
     Active Substance: CENEGERMIN-BKBJ
  4. PRED FORTE [Concomitant]
     Active Substance: PREDNISOLONE ACETATE
  5. METHOCARBAMOL [Concomitant]
     Active Substance: METHOCARBAMOL
  6. ZIOPTAN [Concomitant]
     Active Substance: TAFLUPROST

REACTIONS (2)
  - Migraine [Not Recovered/Not Resolved]
  - Eye infection [Unknown]

NARRATIVE: CASE EVENT DATE: 20250312
